FAERS Safety Report 7054858-0 (Version None)
Quarter: 2010Q4

REPORT INFORMATION
  Report Type: 
  Country: None (occurrence: None)
  Receive Date: 20101021
  Receipt Date: 20101013
  Transmission Date: 20110411
  Serious: No
  Sender: FDA-Public Use
  Company Number: US-BIOGENIDEC-2009BI011919

PATIENT
  Age: 51 Year
  Sex: Female

DRUGS (2)
  1. TYSABRI [Suspect]
     Indication: MULTIPLE SCLEROSIS
     Route: 042
     Dates: start: 20081103, end: 20100101
  2. TYSABRI [Suspect]
     Route: 042
     Dates: start: 20100101

REACTIONS (4)
  - ARTHRALGIA [None]
  - ASTHENIA [None]
  - FATIGUE [None]
  - INFUSION SITE PAIN [None]
